FAERS Safety Report 11885454 (Version 4)
Quarter: 2017Q2

REPORT INFORMATION
  Report Type: Report from Study
  Country: IN (occurrence: IN)
  Receive Date: 20160104
  Receipt Date: 20170403
  Transmission Date: 20170912
  Serious: Yes (Death, Hospitalization)
  Sender: FDA-Public Use
  Company Number: IN-JNJFOC-20151224686

PATIENT
  Age: 70 Year
  Sex: Male

DRUGS (9)
  1. MECOBALAMIN [Concomitant]
     Active Substance: METHYLCOBALAMIN
     Indication: NEUROPATHY PERIPHERAL
     Route: 030
     Dates: start: 20141217
  2. HUMINSULIN [Concomitant]
     Active Substance: INSULIN HUMAN
     Indication: TYPE 2 DIABETES MELLITUS
     Route: 048
     Dates: start: 20141222
  3. TELMISARTAN [Concomitant]
     Indication: CHEST PAIN
     Route: 048
     Dates: start: 20130618
  4. METFORMIN [Concomitant]
     Active Substance: METFORMIN HYDROCHLORIDE
     Indication: TYPE 2 DIABETES MELLITUS
     Route: 048
     Dates: start: 20141217
  5. MONOTRATE [Concomitant]
     Indication: CHEST PAIN
     Route: 048
     Dates: start: 20130618
  6. CANAGLIFLOZIN [Suspect]
     Active Substance: CANAGLIFLOZIN
     Route: 048
  7. ATENOLOL [Concomitant]
     Indication: BLOOD PRESSURE INCREASED
     Route: 048
     Dates: start: 20110316
  8. ECOSPRIN AV [Concomitant]
     Indication: CHEST PAIN
     Dosage: DOSE WAS 75/10 MG
     Route: 048
     Dates: start: 20130618
  9. TEGRETOL [Concomitant]
     Indication: NEUROPATHY PERIPHERAL
     Route: 048
     Dates: start: 20100930

REACTIONS (1)
  - Cardio-respiratory arrest [Fatal]

NARRATIVE: CASE EVENT DATE: 20151220
